FAERS Safety Report 17105821 (Version 1)
Quarter: 2019Q4

REPORT INFORMATION
  Report Type: Spontaneous
  Country: SE (occurrence: SE)
  Receive Date: 20191203
  Receipt Date: 20191203
  Transmission Date: 20200122
  Serious: Yes (Hospitalization)
  Sender: FDA-Public Use
  Company Number: SE-PFIZER INC-2019515365

PATIENT
  Sex: Female

DRUGS (6)
  1. RISPERDAL [Suspect]
     Active Substance: RISPERIDONE
     Dosage: 14 MG (14 PIECES OF 1 MG)
     Route: 048
     Dates: start: 20180424, end: 20180424
  2. SERTRALINE HCL [Suspect]
     Active Substance: SERTRALINE HYDROCHLORIDE
     Dosage: 700 MG (7 PIECES OF SERTRALINE 100 MG)
     Route: 048
     Dates: start: 20180424, end: 20180424
  3. OXASCAND [Suspect]
     Active Substance: OXAZEPAM
     Dosage: 3 PIECES
     Route: 048
     Dates: start: 20180424, end: 20180424
  4. LERGIGAN [PROMETHAZINE HYDROCHLORIDE] [Suspect]
     Active Substance: PROMETHAZINE HYDROCHLORIDE
     Dosage: 700 MG (14 PIECES OF 50 MG)
     Route: 048
     Dates: start: 20180424, end: 20180424
  5. MELATONIN [Suspect]
     Active Substance: MELATONIN
     Dosage: 70 MG (14 PIECES OF 5 MG)
     Route: 048
     Dates: start: 20180424, end: 20180424
  6. OLANZAPINE. [Suspect]
     Active Substance: OLANZAPINE
     Dosage: 70 MG (7 PIECES OF OLANZAPINE 10 MG)
     Route: 048
     Dates: start: 20180424, end: 20180424

REACTIONS (2)
  - Intentional overdose [Unknown]
  - Suicide attempt [Unknown]

NARRATIVE: CASE EVENT DATE: 20180424
